FAERS Safety Report 10162149 (Version 2)
Quarter: 2014Q2

REPORT INFORMATION
  Report Type: Report from Study
  Country: GB (occurrence: GB)
  Receive Date: 20140509
  Receipt Date: 20140509
  Transmission Date: 20141212
  Serious: Yes (Death)
  Sender: FDA-Public Use
  Company Number: GB-JNJFOC-20140217379

PATIENT
  Sex: Male
  Weight: 140 kg

DRUGS (16)
  1. STELARA [Suspect]
     Indication: PSORIASIS
     Route: 058
     Dates: start: 20110228
  2. DILTIAZEM [Concomitant]
     Route: 065
     Dates: start: 19990115
  3. ISOSORBIDE MONONITRATE [Concomitant]
     Route: 065
     Dates: start: 19990115
  4. OMEPRAZOLE [Concomitant]
     Route: 065
     Dates: start: 20060115
  5. SALBUTAMOL [Concomitant]
     Route: 065
     Dates: start: 19990101
  6. FLUTICASONE [Concomitant]
     Route: 065
     Dates: start: 19990101
  7. SIMVASTATIN [Concomitant]
     Route: 065
     Dates: start: 19990101
  8. CICLOSPORIN [Concomitant]
     Route: 065
     Dates: start: 20111104
  9. CO AMOXICLAV [Concomitant]
     Route: 065
     Dates: start: 20120311, end: 20120318
  10. CO AMOXICLAV [Concomitant]
     Route: 065
     Dates: start: 20130220, end: 20130227
  11. ASPIRIN [Concomitant]
     Route: 065
     Dates: start: 19990115
  12. PREDNISOLONE [Concomitant]
     Route: 065
     Dates: start: 20130220, end: 20130227
  13. PREDNISOLONE [Concomitant]
     Route: 065
     Dates: start: 20120311, end: 20120318
  14. PREDNISOLONE [Concomitant]
     Route: 065
     Dates: start: 20120420, end: 20120427
  15. AMOXICILLIN [Concomitant]
     Route: 065
     Dates: start: 20120420, end: 20120427
  16. AMOXICILLIN [Concomitant]
     Route: 065
     Dates: start: 20130220, end: 20130227

REACTIONS (1)
  - Tongue neoplasm malignant stage unspecified [Fatal]
